FAERS Safety Report 9054531 (Version 2)
Quarter: 2013Q1

REPORT INFORMATION
  Report Type: Report from Study
  Country: GB (occurrence: GB)
  Receive Date: 20130208
  Receipt Date: 20130214
  Transmission Date: 20140127
  Serious: Yes (Death, Hospitalization)
  Sender: FDA-Public Use
  Company Number: GB-PFIZER INC-2013040255

PATIENT
  Age: 63 Year
  Sex: Female
  Weight: 50 kg

DRUGS (13)
  1. AXITINIB [Suspect]
     Indication: ANGIOSARCOMA
     Dosage: 3 MG, UNK
     Dates: start: 20121111, end: 20130115
  2. AXITINIB [Suspect]
     Indication: SARCOMA
  3. FENTANYL [Concomitant]
     Indication: PAIN
     Dosage: 25 UG, 1X/DAY
     Route: 061
     Dates: start: 20130121
  4. FENTANYL [Concomitant]
     Dosage: 200 UG, 1X/DAY
     Route: 002
     Dates: start: 20130122, end: 20130122
  5. PARACETAMOL [Concomitant]
     Indication: PAIN
     Dosage: 1 G, AS NEEDED
     Route: 048
     Dates: start: 20130120
  6. PREGABALIN [Concomitant]
     Indication: NEURALGIA
     Dosage: 75 MG, 1X/DAY
     Route: 048
     Dates: start: 20130120, end: 20130120
  7. CLONAZEPAM [Concomitant]
     Dosage: 500 UG, 1X/DAY
     Route: 048
     Dates: start: 20130120, end: 20130122
  8. OMEPRAZOLE [Concomitant]
     Indication: DYSPEPSIA
     Dosage: 40 MG, 1X/DAY
     Route: 048
  9. OXYCODONE [Concomitant]
     Indication: PAIN
     Dosage: 15 MG, AS NEEDED
     Route: 048
     Dates: start: 20130120
  10. OXYCODONE [Concomitant]
     Dosage: 30 MG, AS NEEDED
     Route: 048
  11. LORAZEPAM [Concomitant]
     Indication: PAIN
     Dosage: 0.5 MG, 2X/DAY
     Route: 048
     Dates: start: 20130122
  12. LORAZEPAM [Concomitant]
     Dosage: 1 MG, 2X/DAY
     Route: 048
  13. ALFENTANIL [Concomitant]
     Indication: PAIN
     Dosage: 500 UG, AS NEEDED
     Route: 058
     Dates: start: 20130122

REACTIONS (1)
  - Fatigue [Fatal]
